FAERS Safety Report 7259147-7 (Version None)
Quarter: 2011Q1

REPORT INFORMATION
  Report Type: 
  Country: None (occurrence: None)
  Receive Date: 20110129
  Receipt Date: 20100624
  Transmission Date: 20110831
  Serious: No
  Sender: FDA-Public Use
  Company Number: US-ABBOTT-10P-163-0653407-00

PATIENT
  Age: 72 Year
  Sex: Female

DRUGS (5)
  1. HUMIRA [Suspect]
     Indication: RHEUMATOID ARTHRITIS
     Dates: start: 20100425
  2. LEXAPRO [Concomitant]
     Indication: DEPRESSION
  3. BUPROPION [Concomitant]
     Indication: DEPRESSION
  4. CLONAZEPAM [Concomitant]
     Indication: INSOMNIA
  5. SEROQUEL [Concomitant]
     Indication: DEPRESSION
     Dosage: AT NIGHT

REACTIONS (1)
  - PAIN IN JAW [None]
